FAERS Safety Report 7074924-3 (Version None)
Quarter: 2010Q4

REPORT INFORMATION
  Report Type: 
  Country: None (occurrence: None)
  Receive Date: 20101029
  Receipt Date: 20101027
  Transmission Date: 20110411
  Serious: Yes (Disabling)
  Sender: FDA-Public Use
  Company Number: GB-MERCK-1010GBR00095

PATIENT
  Age: 71 Year
  Sex: Female

DRUGS (4)
  1. FOSAMAX [Suspect]
     Route: 048
     Dates: start: 20071204
  2. FOSAMAX [Suspect]
     Route: 061
  3. OMEPRAZOLE [Concomitant]
     Route: 065
  4. MORPHINE SULFATE [Concomitant]
     Route: 065

REACTIONS (1)
  - OSTEONECROSIS [None]
